FAERS Safety Report 11436370 (Version 1)
Quarter: 2015Q3

REPORT INFORMATION
  Report Type: Spontaneous
  Country: US (occurrence: US)
  Receive Date: 20150821
  Receipt Date: 20150821
  Transmission Date: 20151125
  Serious: Yes (Other)
  Sender: FDA-Public Use
  Company Number: US-ELI_LILLY_AND_COMPANY-US201405005866

PATIENT

DRUGS (2)
  1. INSULIN HUMAN [Suspect]
     Active Substance: INSULIN HUMAN
     Indication: TYPE 1 DIABETES MELLITUS
     Route: 064
  2. HUMULIN U [Suspect]
     Active Substance: INSULIN HUMAN
     Indication: TYPE 1 DIABETES MELLITUS
     Route: 064

REACTIONS (6)
  - Abdominal distension [Recovered/Resolved]
  - Large for dates baby [Recovered/Resolved]
  - Blood glucose decreased [Recovered/Resolved]
  - Jaundice [Recovered/Resolved]
  - Premature baby [Recovered/Resolved]
  - Cyanosis neonatal [Recovered/Resolved]
